FAERS Safety Report 25794953 (Version 1)
Quarter: 2025Q3

REPORT INFORMATION
  Report Type: Spontaneous
  Country: US (occurrence: US)
  Receive Date: 20250912
  Receipt Date: 20250912
  Transmission Date: 20251021
  Serious: No
  Sender: TARO
  Company Number: US-TARO PHARMACEUTICALS USA INC.-2024TAR02150

PATIENT

DRUGS (4)
  1. HYDROCORTISONE [Suspect]
     Active Substance: HYDROCORTISONE
     Indication: Pruritus
     Route: 061
  2. HYDROCORTISONE [Suspect]
     Active Substance: HYDROCORTISONE
     Indication: Pruritus
  3. ALOE [Concomitant]
     Active Substance: ALOE
     Indication: Pruritus
     Route: 065
  4. ALOE [Concomitant]
     Active Substance: ALOE
     Indication: Pruritus

REACTIONS (1)
  - Expired product administered [Unknown]
